FAERS Safety Report 21109934 (Version 4)
Quarter: 2022Q3

REPORT INFORMATION
  Report Type: Report from Study
  Country: US (occurrence: US)
  Receive Date: 20220721
  Receipt Date: 20220826
  Transmission Date: 20221027
  Serious: Yes (Other)
  Sender: FDA-Public Use
  Company Number: US-NOVARTISTESTPH-NVSC2022US165008

PATIENT
  Sex: Female

DRUGS (1)
  1. COSENTYX [Suspect]
     Active Substance: SECUKINUMAB
     Indication: Ankylosing spondylitis
     Dosage: 300 MG, QMO
     Route: 058

REACTIONS (12)
  - Haematochezia [Unknown]
  - Dysgeusia [Unknown]
  - Abdominal pain [Unknown]
  - Rash [Unknown]
  - Flatulence [Unknown]
  - Oropharyngeal pain [Unknown]
  - Mouth ulceration [Unknown]
  - Urine flow decreased [Unknown]
  - Headache [Unknown]
  - Nausea [Unknown]
  - Diarrhoea [Unknown]
  - Therapeutic product effect decreased [Unknown]
